FAERS Safety Report 24059961 (Version 2)
Quarter: 2024Q3

REPORT INFORMATION
  Report Type: Report from Study
  Country: BY (occurrence: BY)
  Receive Date: 20240708
  Receipt Date: 20240709
  Transmission Date: 20241017
  Serious: Yes (Death, Life-Threatening)
  Sender: MYLAN
  Company Number: BY-MYLANLABS-2024M1062839

PATIENT
  Age: 72 Year
  Sex: Male
  Weight: 44.7 kg

DRUGS (16)
  1. PRETOMANID [Suspect]
     Active Substance: PRETOMANID
     Indication: Tuberculosis
     Dosage: 200 MILLIGRAM, QD
     Route: 048
     Dates: start: 20230428, end: 20231013
  2. BEDAQUILINE [Suspect]
     Active Substance: BEDAQUILINE
     Indication: Tuberculosis
     Dosage: 400 MILLIGRAM, QD (400 MG OD PO FOR 2 WEEKS)
     Route: 048
     Dates: start: 20230428
  3. BEDAQUILINE [Suspect]
     Active Substance: BEDAQUILINE
     Dosage: 200 MILLIGRAM, 3XW (200 MG TIW PO)
     Route: 048
     Dates: start: 2023, end: 20231013
  4. LINEZOLID [Suspect]
     Active Substance: LINEZOLID
     Indication: Tuberculosis
     Dosage: 600 MILLIGRAM, QD (600 MG OD PO)
     Route: 048
     Dates: start: 20230428
  5. LINEZOLID [Suspect]
     Active Substance: LINEZOLID
     Dosage: 300 MILLIGRAM, QD (300 MG OD)
     Route: 048
     Dates: start: 2023, end: 20231013
  6. CLOFAZIMINE [Suspect]
     Active Substance: CLOFAZIMINE
     Indication: Tuberculosis
     Dosage: 100 MILLIGRAM, QD (100 MG OD PO)
     Route: 048
     Dates: start: 20230428, end: 20231013
  7. BISOPROLOL [Concomitant]
     Active Substance: BISOPROLOL\BISOPROLOL FUMARATE
     Indication: Myocardial ischaemia
     Dosage: 2.5 MILLIGRAM, QD (2.5 MG X 1R/DAY )
     Route: 065
     Dates: start: 20230316, end: 20231026
  8. RAMIPRIL [Concomitant]
     Active Substance: RAMIPRIL
     Indication: Myocardial ischaemia
     Dosage: 5 MILLIGRAM, QD (5 MG IN THE MORNING)
     Route: 065
     Dates: start: 20230316, end: 20231026
  9. ATORVASTATIN [Concomitant]
     Active Substance: ATORVASTATIN
     Indication: Myocardial ischaemia
     Dosage: 20 MILLIGRAM, QD (20 MG AT NIGHT)
     Route: 065
     Dates: start: 20230316, end: 20231030
  10. HYDROCHLOROTHIAZIDE [Concomitant]
     Active Substance: HYDROCHLOROTHIAZIDE
     Indication: Myocardial ischaemia
     Dosage: 25 MILLIGRAM, QD (25 MG IN THE MORNING )
     Route: 065
     Dates: start: 20230316, end: 20231030
  11. SPIRONOLACTONE [Concomitant]
     Active Substance: SPIRONOLACTONE
     Indication: Myocardial ischaemia
     Dosage: 50 MILLIGRAM, QD (50 MG AT 12.0)
     Route: 065
     Dates: start: 20230316, end: 20231030
  12. TRANEXAMIC ACID [Concomitant]
     Active Substance: TRANEXAMIC ACID
     Indication: Anaemia
     Dosage: 750 MILLIGRAM, BID (750 MG IV 2 TIMES A DAY)
     Route: 042
     Dates: start: 20231024, end: 20231030
  13. KONAKION [Concomitant]
     Active Substance: PHYTONADIONE
     Indication: Anaemia
     Dosage: 2.5 MILLIGRAM, QID (2.5 MG IV 4 TIMES A DAY)
     Route: 042
     Dates: start: 20231024, end: 20231030
  14. Ipraterol aeronativ [Concomitant]
     Indication: Chronic obstructive pulmonary disease
     Dosage: 2 DOSAGE FORM, BID (2 BREATHS X 2 TIMES PER  DAY)
     Route: 055
     Dates: start: 20230523, end: 20231030
  15. Ferromed [Concomitant]
     Indication: Anaemia
     Dosage: 100 MILLIGRAM, BID (100 MG X 2 TIMES / DAY )
     Route: 065
     Dates: start: 20230928, end: 20231030
  16. FOLIC ACID [Concomitant]
     Active Substance: FOLIC ACID
     Indication: Anaemia
     Dosage: 2 MILLIGRAM, TID (2 MG X 3 TIMES A DAY)
     Route: 065
     Dates: start: 20230928, end: 20231030

REACTIONS (3)
  - Metastatic bronchial carcinoma [Fatal]
  - Anaemia [Recovering/Resolving]
  - Bronchial carcinoma [Recovered/Resolved with Sequelae]

NARRATIVE: CASE EVENT DATE: 20230928
